FAERS Safety Report 17796175 (Version 1)
Quarter: 2020Q2

REPORT INFORMATION
  Report Type: Report from Study
  Country: AR (occurrence: AR)
  Receive Date: 20200517
  Receipt Date: 20200517
  Transmission Date: 20200714
  Serious: Yes (Hospitalization)
  Sender: FDA-Public Use
  Company Number: NVSC2020AR035424

PATIENT
  Age: 40 Year
  Sex: Female

DRUGS (1)
  1. AFINITOR [Suspect]
     Active Substance: EVEROLIMUS
     Indication: BREAST CANCER METASTATIC
     Dosage: 10 MG, QD
     Route: 065
     Dates: start: 20200113, end: 20200415

REACTIONS (10)
  - Cholelithiasis [Unknown]
  - Abdominal pain [Unknown]
  - Nephrolithiasis [Not Recovered/Not Resolved]
  - Vomiting [Not Recovered/Not Resolved]
  - Stomatitis [Not Recovered/Not Resolved]
  - Dyspnoea [Not Recovered/Not Resolved]
  - Solar lentigo [Not Recovered/Not Resolved]
  - Pleural effusion [Not Recovered/Not Resolved]
  - Cough [Unknown]
  - Chest discomfort [Unknown]

NARRATIVE: CASE EVENT DATE: 20200412
